FAERS Safety Report 18564010 (Version 1)
Quarter: 2020Q4

REPORT INFORMATION
  Report Type: Spontaneous
  Country: US (occurrence: US)
  Receive Date: 20201130
  Receipt Date: 20201130
  Transmission Date: 20210114
  Serious: Yes (Other)
  Sender: FDA-Public Use
  Company Number: None

PATIENT
  Age: 72 Year
  Sex: Female
  Weight: 104.85 kg

DRUGS (10)
  1. ROSUVASTATIN. [Concomitant]
     Active Substance: ROSUVASTATIN
  2. METOPROLOL. [Concomitant]
     Active Substance: METOPROLOL
  3. FAMOTIDINE. [Concomitant]
     Active Substance: FAMOTIDINE
  4. KLOR-CON M10 [Concomitant]
     Active Substance: POTASSIUM CHLORIDE
  5. SUCRALFATE. [Concomitant]
     Active Substance: SUCRALFATE
  6. WARFARIN [Concomitant]
     Active Substance: WARFARIN
  7. ONDANSETRON [Concomitant]
     Active Substance: ONDANSETRON
  8. HERCEPTIN [Concomitant]
     Active Substance: TRASTUZUMAB
  9. CAPECITABINE. [Suspect]
     Active Substance: CAPECITABINE
     Indication: PLASMA CELL MYELOMA
     Route: 048
     Dates: start: 20200929
  10. IMODIUM [Concomitant]
     Active Substance: LOPERAMIDE HYDROCHLORIDE

REACTIONS (1)
  - Pain in extremity [None]

NARRATIVE: CASE EVENT DATE: 20201130
